FAERS Safety Report 13073258 (Version 3)
Quarter: 2017Q1

REPORT INFORMATION
  Report Type: Report from Study
  Country: US (occurrence: US)
  Receive Date: 20161229
  Receipt Date: 20170125
  Transmission Date: 20170428
  Serious: Yes (Hospitalization)
  Sender: FDA-Public Use
  Company Number: US-JNJFOC-20160913829

PATIENT
  Age: 83 Year
  Sex: Male

DRUGS (13)
  1. ORPHENADRINE CITRATE W/PARACETAMOL [Concomitant]
  2. DILTIAZEM. [Concomitant]
     Active Substance: DILTIAZEM
  3. ELIQUIS [Concomitant]
     Active Substance: APIXABAN
  4. HYDROMORPHONE [Concomitant]
     Active Substance: HYDROMORPHONE
  5. MELOXICAM. [Concomitant]
     Active Substance: MELOXICAM
  6. IMBRUVICA [Suspect]
     Active Substance: IBRUTINIB
     Indication: CHRONIC LYMPHOCYTIC LEUKAEMIA
     Dosage: 280 MG, QD
     Route: 048
     Dates: start: 20160901
  7. IMBRUVICA [Suspect]
     Active Substance: IBRUTINIB
     Indication: CHRONIC LYMPHOCYTIC LEUKAEMIA
     Route: 048
     Dates: start: 20160902
  8. ALBUTEROL. [Concomitant]
     Active Substance: ALBUTEROL
  9. SPIRIVA [Concomitant]
     Active Substance: TIOTROPIUM BROMIDE MONOHYDRATE
  10. ASPIRIN. [Concomitant]
     Active Substance: ASPIRIN
  11. PREDNISONE. [Concomitant]
     Active Substance: PREDNISONE
  12. ADVAIR HFA [Concomitant]
     Active Substance: FLUTICASONE PROPIONATE\SALMETEROL XINAFOATE
  13. VENTOLIN [Concomitant]
     Active Substance: ALBUTEROL SULFATE

REACTIONS (17)
  - Myocardial infarction [Unknown]
  - Fatigue [Not Recovered/Not Resolved]
  - Bleeding time prolonged [Not Recovered/Not Resolved]
  - Off label use [Recovered/Resolved]
  - Constipation [Unknown]
  - Decreased appetite [Not Recovered/Not Resolved]
  - Incorrect dose administered [Recovered/Resolved]
  - Dysuria [Unknown]
  - Haemorrhagic diathesis [Not Recovered/Not Resolved]
  - Muscle spasms [Not Recovered/Not Resolved]
  - Laceration [Not Recovered/Not Resolved]
  - Weight increased [Unknown]
  - Nausea [Not Recovered/Not Resolved]
  - Rash [Unknown]
  - Musculoskeletal chest pain [Unknown]
  - Contusion [Not Recovered/Not Resolved]
  - Increased tendency to bruise [Not Recovered/Not Resolved]

NARRATIVE: CASE EVENT DATE: 2016
